FAERS Safety Report 26019630 (Version 1)
Quarter: 2025Q4

REPORT INFORMATION
  Report Type: Spontaneous
  Country: MG (occurrence: MG)
  Receive Date: 20251110
  Receipt Date: 20251110
  Transmission Date: 20260117
  Serious: Yes (Death, Hospitalization, Other)
  Sender: AZURITY PHARMACEUTICALS
  Company Number: MG-AZURITY PHARMACEUTICALS, INC.-AZR202510-003319

PATIENT
  Age: 30 Year
  Sex: Female

DRUGS (1)
  1. METHOTREXATE [Suspect]
     Active Substance: METHOTREXATE
     Indication: Ectopic pregnancy
     Dosage: 1 MILLIMOLE PER KILOGRAM (75 MG TOTAL)
     Route: 030
     Dates: start: 20200507

REACTIONS (3)
  - Multiple organ dysfunction syndrome [Fatal]
  - Toxic skin eruption [Unknown]
  - Product use in unapproved indication [Unknown]

NARRATIVE: CASE EVENT DATE: 20200501
